FAERS Safety Report 26207548 (Version 1)
Quarter: 2025Q4

REPORT INFORMATION
  Report Type: Spontaneous
  Country: US (occurrence: None)
  Receive Date: 20251224
  Receipt Date: 20251224
  Transmission Date: 20260117
  Serious: No
  Sender: FDA-CTU
  Company Number: None

PATIENT
  Age: 45 Year
  Sex: Female
  Weight: 76.5 kg

DRUGS (3)
  1. HUMIRA [Suspect]
     Active Substance: ADALIMUMAB
     Indication: Rheumatoid arthritis
     Dosage: : 40 MG EVERY TWO WEEKS SUBCUTANEOUS
     Route: 058
     Dates: start: 20251112
  2. PREDNISONE [Concomitant]
     Active Substance: PREDNISONE
  3. PREDNISOLONE [Concomitant]
     Active Substance: PREDNISOLONE

REACTIONS (4)
  - Migraine [None]
  - Scleritis [None]
  - Feeling hot [None]
  - Menstruation irregular [None]

NARRATIVE: CASE EVENT DATE: 20251221
